FAERS Safety Report 5352470-2 (Version None)
Quarter: 2007Q2

REPORT INFORMATION
  Report Type: 
  Country: None (occurrence: None)
  Receive Date: 20070611
  Receipt Date: 20070605
  Transmission Date: 20071010
  Serious: Yes (Hospitalization)
  Sender: FDA-Public Use
  Company Number: B0467633A

PATIENT
  Age: 75 Year
  Sex: Male

DRUGS (11)
  1. VALTREX [Suspect]
     Indication: HERPES ZOSTER
     Dosage: 3000MG PER DAY
     Route: 048
     Dates: start: 20070406, end: 20070408
  2. ASPIRIN [Concomitant]
     Dosage: 100MG PER DAY
     Route: 048
  3. WARFARIN SODIUM [Concomitant]
     Dosage: 2.5MG PER DAY
     Route: 048
  4. ASVERIN [Concomitant]
     Dosage: 20MG PER DAY
     Route: 048
  5. MUCOSTA [Concomitant]
     Dosage: 100MG PER DAY
     Route: 048
  6. TAKEPRON [Concomitant]
     Dosage: 15MG PER DAY
     Route: 048
  7. ROCALTROL [Concomitant]
     Dosage: .25MCG PER DAY
     Route: 048
  8. VASOLAN [Concomitant]
     Dosage: 120MG PER DAY
     Route: 048
  9. CALTAN [Concomitant]
     Dosage: 3000MG PER DAY
     Route: 048
  10. RENAGEL [Concomitant]
     Dosage: 1500MG PER DAY
     Route: 048
  11. HALCION [Concomitant]
     Dosage: .25MG PER DAY
     Route: 048

REACTIONS (8)
  - DELIRIUM [None]
  - DEPRESSED LEVEL OF CONSCIOUSNESS [None]
  - DYSARTHRIA [None]
  - ENCEPHALOPATHY [None]
  - GAIT DISTURBANCE [None]
  - MUSCULAR WEAKNESS [None]
  - PRESCRIBED OVERDOSE [None]
  - SOMNOLENCE [None]
